FAERS Safety Report 8953067 (Version 2)
Quarter: 2012Q4

REPORT INFORMATION
  Report Type: 
  Country: AU (occurrence: AU)
  Receive Date: 20121205
  Receipt Date: 20121228
  Transmission Date: 20130627
  Serious: Yes (Life-Threatening, Hospitalization, Other)
  Sender: FDA-Public Use
  Company Number: AU-B.I. PHARMACEUTICALS,INC./RIDGEFIELD-2012-AU-01942AU

PATIENT
  Age: 70 None
  Sex: Female
  Weight: 66.5 kg

DRUGS (7)
  1. PRADAXA [Suspect]
     Indication: CEREBROVASCULAR ACCIDENT PROPHYLAXIS
     Dosage: 300 mg
     Dates: start: 20111025, end: 20120921
  2. PRADAXA [Suspect]
     Indication: ATRIAL FIBRILLATION
  3. AMIODARONE [Concomitant]
  4. LIPITOR [Concomitant]
     Dosage: 20 mg
  5. METOPROLOL [Concomitant]
     Dosage: 200 mg
  6. MINIPRESS [Concomitant]
     Dosage: 1 mg
  7. VALIUM [Concomitant]
     Dosage: 5 mg

REACTIONS (6)
  - Haemorrhage intracranial [Recovered/Resolved]
  - Convulsion [Recovered/Resolved]
  - Syncope [Recovered/Resolved]
  - Hepatic enzyme increased [Recovered/Resolved]
  - Hypothyroidism [Unknown]
  - Epistaxis [Recovered/Resolved]
